FAERS Safety Report 8099174-3 (Version None)
Quarter: 2012Q1

REPORT INFORMATION
  Report Type: 
  Country: None (occurrence: None)
  Receive Date: 20120129
  Receipt Date: 20111004
  Transmission Date: 20120608
  Serious: No
  Sender: FDA-Public Use
  Company Number: US-ABBOTT-11P-163-0860887-00

PATIENT
  Sex: Female
  Weight: 52.21 kg

DRUGS (5)
  1. UNKNOWN MEDICATION [Concomitant]
     Indication: ANXIETY
  2. HUMIRA [Suspect]
     Indication: RHEUMATOID ARTHRITIS
     Route: 058
     Dates: start: 20100101
  3. METHOTREXATE [Concomitant]
     Indication: RHEUMATOID ARTHRITIS
     Dosage: WEEKLY
  4. UNKNOWN MEDICATION [Concomitant]
     Indication: DEPRESSION
  5. MULTI-VITAMIN [Concomitant]
     Indication: VITAMIN SUPPLEMENTATION

REACTIONS (1)
  - INJECTION SITE PAIN [None]
